FAERS Safety Report 10576154 (Version 2)
Quarter: 2015Q1

REPORT INFORMATION
  Report Type: Spontaneous
  Country: US (occurrence: None)
  Receive Date: 20141107
  Receipt Date: 20150317
  Transmission Date: 20150720
  Serious: Yes (Other)
  Sender: FDA-Public Use
  Company Number: PR 1943

PATIENT
  Age: 39 Year
  Sex: Female

DRUGS (12)
  1. ZIOPTAN [Suspect]
     Active Substance: TAFLUPROST
     Indication: OPEN ANGLE GLAUCOMA
     Dosage: 1GTT INTO BOTH EYES/DAY
     Dates: start: 20131211
  2. FAMOSTAGINE (FAMOTIDINE) [Concomitant]
  3. MICARDIS [Concomitant]
     Active Substance: TELMISARTAN
  4. BAKTAR (SULFAMETHOXAXOLE, TRIMETHOPRIM) [Concomitant]
  5. PREDONINE (PREDNISOLONE) [Concomitant]
  6. PROGRAF [Concomitant]
     Active Substance: TACROLIMUS\TACROLIMUS ANHYDROUS
  7. PREDNISOLONE (PREDNISOLONE) [Concomitant]
     Active Substance: PREDNISOLONE
  8. ISCOTIN (ISONIAZID) [Concomitant]
  9. LASIX [Concomitant]
     Active Substance: FUROSEMIDE
  10. LIPITOR [Concomitant]
     Active Substance: ATORVASTATIN CALCIUM
  11. FAMOSTAGINE D (FAMOTIDINE) [Concomitant]
  12. PERSANTIN (DIPYRIDAMOLE) [Concomitant]

REACTIONS (3)
  - Keratitis [None]
  - Hysterectomy [None]
  - Dry eye [None]

NARRATIVE: CASE EVENT DATE: 20140212
